FAERS Safety Report 14389046 (Version 2)
Quarter: 2019Q2

REPORT INFORMATION
  Report Type: Spontaneous
  Country: US (occurrence: US)
  Receive Date: 20180115
  Receipt Date: 20190603
  Transmission Date: 20190711
  Serious: Yes (Other)
  Sender: FDA-Public Use
  Company Number: US-SA-2017SA227199

PATIENT
  Age: 47 Year
  Sex: Female
  Weight: 72 kg

DRUGS (14)
  1. IDARUBICIN HYDROCHLORIDE. [Concomitant]
     Active Substance: IDARUBICIN HYDROCHLORIDE
     Indication: PRODUCT USED FOR UNKNOWN INDICATION
     Route: 042
  2. CYTOXAN [Concomitant]
     Active Substance: CYCLOPHOSPHAMIDE
     Indication: PRODUCT USED FOR UNKNOWN INDICATION
     Route: 042
  3. DOXORUBICIN [Concomitant]
     Active Substance: DOXORUBICIN
     Indication: PRODUCT USED FOR UNKNOWN INDICATION
     Route: 042
  4. FEMARA [Concomitant]
     Active Substance: LETROZOLE
     Dosage: UNK UNK, UNK
     Route: 042
     Dates: start: 20090801, end: 20140801
  5. DEXAMETHASONE. [Concomitant]
     Active Substance: DEXAMETHASONE
     Indication: PRODUCT USED FOR UNKNOWN INDICATION
     Route: 042
  6. NEOSAR [Concomitant]
     Active Substance: CYCLOPHOSPHAMIDE
     Route: 042
  7. VITAMINS NOS [Concomitant]
     Active Substance: VITAMINS
     Route: 042
  8. TAXOTERE [Suspect]
     Active Substance: DOCETAXEL
     Indication: BREAST CANCER FEMALE
     Dosage: 170 MG,Q3W
     Route: 042
     Dates: start: 20040303, end: 20040303
  9. TAXOTERE [Suspect]
     Active Substance: DOCETAXEL
     Dosage: 170 MG,Q3W
     Route: 042
     Dates: start: 20040505, end: 20040505
  10. AROMA [Concomitant]
     Dosage: UNK UNK, UNK
     Route: 042
     Dates: start: 20090802, end: 20130930
  11. KYTRIL [Concomitant]
     Active Substance: GRANISETRON HYDROCHLORIDE
     Indication: PRODUCT USED FOR UNKNOWN INDICATION
     Route: 042
  12. ADRIAMYCIN [Concomitant]
     Active Substance: DOXORUBICIN HYDROCHLORIDE
     Route: 042
  13. TAMOXIFEN [Concomitant]
     Active Substance: TAMOXIFEN
     Dosage: UNK UNK, UNK
     Route: 042
     Dates: start: 20040801, end: 20090801
  14. HYDROCHLOROTHIAZIDE. [Concomitant]
     Active Substance: HYDROCHLOROTHIAZIDE
     Route: 042

REACTIONS (1)
  - Alopecia [Not Recovered/Not Resolved]

NARRATIVE: CASE EVENT DATE: 20041105
